FAERS Safety Report 4901735-4 (Version None)
Quarter: 2006Q1

REPORT INFORMATION
  Report Type: 
  Country: None (occurrence: None)
  Receive Date: 20060206
  Receipt Date: 20060126
  Transmission Date: 20060701
  Serious: Yes (Death)
  Sender: FDA-Public Use
  Company Number: US-JNJFOC-20060105773

PATIENT
  Sex: Female
  Weight: 56.7 kg

DRUGS (7)
  1. INFLIXIMAB [Suspect]
     Indication: RHEUMATOID ARTHRITIS
     Route: 042
  2. METHOTREXATE [Concomitant]
  3. HYDROXYCHLOROQUINE SULFATE [Concomitant]
  4. TRIAMTERENE [Concomitant]
  5. FOLIC ACID [Concomitant]
  6. CALTRATE [Concomitant]
  7. MIACALCIN [Concomitant]

REACTIONS (1)
  - CEREBROVASCULAR ACCIDENT [None]
